FAERS Safety Report 21341911 (Version 1)
Quarter: 2022Q3

REPORT INFORMATION
  Report Type: Spontaneous
  Country: CN (occurrence: CN)
  Receive Date: 20220916
  Receipt Date: 20220916
  Transmission Date: 20221026
  Serious: Yes (Life-Threatening, Other)
  Sender: FDA-Public Use
  Company Number: CN-Accord-277366

PATIENT
  Age: 50 Year
  Sex: Female

DRUGS (4)
  1. CISPLATIN [Suspect]
     Active Substance: CISPLATIN
     Indication: Small cell lung cancer extensive stage
     Dates: start: 201810
  2. ETOPOSIDE [Suspect]
     Active Substance: ETOPOSIDE
     Indication: Small cell lung cancer extensive stage
     Dates: start: 201810, end: 201812
  3. LOBAPLATIN [Suspect]
     Active Substance: LOBAPLATIN
     Indication: Small cell lung cancer extensive stage
     Dates: start: 20181018
  4. LOBAPLATIN [Suspect]
     Active Substance: LOBAPLATIN
     Indication: Small cell lung cancer extensive stage
     Dosage: SECOND CYCLE
     Dates: start: 20181112

REACTIONS (4)
  - Granulocytopenia [Unknown]
  - Thrombocytopenia [Unknown]
  - Treatment failure [Unknown]
  - Gastrointestinal disorder [Unknown]
